FAERS Safety Report 8801775 (Version 1)
Quarter: 2012Q4

REPORT INFORMATION
  Report Type: Report from Study
  Country: AU (occurrence: AU)
  Receive Date: 20120921
  Receipt Date: 20120921
  Transmission Date: 20130627
  Serious: Yes (Hospitalization)
  Sender: FDA-Public Use
  Company Number: AU-ROCHE-1128028

PATIENT
  Sex: Female

DRUGS (5)
  1. MABTHERA [Suspect]
     Indication: SYSTEMIC LUPUS ERYTHEMATOSUS
     Route: 065
  2. CYCLOSPORINE [Concomitant]
     Dosage: Dose: 100 mg bd to 150-200 mg bd (3-4 mg/kg)
     Route: 065
  3. IMURAN [Concomitant]
  4. PREDNISOLONE [Concomitant]
     Route: 065
  5. METHYLPREDNISOLONE [Concomitant]
     Dosage: For 3 days
     Route: 065

REACTIONS (1)
  - Vasculitis cerebral [Unknown]
